FAERS Safety Report 14528985 (Version 3)
Quarter: 2018Q3

REPORT INFORMATION
  Report Type: Spontaneous
  Country: US (occurrence: US)
  Receive Date: 20180214
  Receipt Date: 20180928
  Transmission Date: 20181010
  Serious: No
  Sender: FDA-Public Use
  Company Number: US-PFIZER INC-2018054477

PATIENT
  Sex: Female

DRUGS (2)
  1. NEURONTIN [Suspect]
     Active Substance: GABAPENTIN
     Indication: TRIGEMINAL NEURALGIA
     Dosage: 600 MG, 1X/DAY
  2. NEURONTIN [Suspect]
     Active Substance: GABAPENTIN
     Dosage: 500 MG, 2X/DAY

REACTIONS (4)
  - Drug dose omission [Unknown]
  - Malaise [Unknown]
  - Feeling abnormal [Unknown]
  - Facial pain [Unknown]
